FAERS Safety Report 10758350 (Version 1)
Quarter: 2015Q1

REPORT INFORMATION
  Report Type: Spontaneous
  Country: US (occurrence: None)
  Receive Date: 20150202
  Receipt Date: 20150202
  Transmission Date: 20150721
  Serious: Yes (Hospitalization)
  Sender: FDA-Public Use
  Company Number: None

PATIENT
  Age: 66 Year
  Sex: Male
  Weight: 102.5 kg

DRUGS (11)
  1. PRINZIDE-ZESTOTRETIC [Concomitant]
  2. ALPRAZOLAM. [Concomitant]
     Active Substance: ALPRAZOLAM
  3. DITROPAN XL [Concomitant]
     Active Substance: OXYBUTYNIN CHLORIDE
  4. CITRACA/VITO [Concomitant]
  5. CLEOCIN [Concomitant]
     Active Substance: CLINDAMYCIN PHOSPHATE
  6. MAG-OX [Concomitant]
     Active Substance: MAGNESIUM OXIDE
  7. DECADRON [Concomitant]
     Active Substance: DEXAMETHASONE
  8. RESTORIL [Concomitant]
     Active Substance: TEMAZEPAM
  9. XARELTO [Suspect]
     Active Substance: RIVAROXABAN
     Indication: DEEP VEIN THROMBOSIS
     Dosage: 15MG, BID WITH MEALS, PO?RECENT
     Route: 048
  10. NEXIUM [Concomitant]
     Active Substance: ESOMEPRAZOLE MAGNESIUM
  11. FLONCAS [Concomitant]

REACTIONS (2)
  - Haematochezia [None]
  - Diverticulitis intestinal haemorrhagic [None]

NARRATIVE: CASE EVENT DATE: 20140901
